FAERS Safety Report 17274992 (Version 3)
Quarter: 2020Q1

REPORT INFORMATION
  Report Type: Report from Study
  Country: ES (occurrence: ES)
  Receive Date: 20200116
  Receipt Date: 20200129
  Transmission Date: 20200409
  Serious: Yes (Hospitalization)
  Sender: FDA-Public Use
  Company Number: ES-ROCHE-2515566

PATIENT
  Age: 49 Year
  Sex: Female
  Weight: 82 kg

DRUGS (12)
  1. PREDNISONE. [Concomitant]
     Active Substance: PREDNISONE
     Route: 048
     Dates: start: 20200103, end: 20200105
  2. PARACETAMOL [Concomitant]
     Active Substance: ACETAMINOPHEN
     Route: 048
     Dates: start: 20200103, end: 20200111
  3. CODEINE [Concomitant]
     Active Substance: CODEINE
     Indication: INFECTION
     Route: 048
     Dates: start: 20191227, end: 20200103
  4. ASCORBIC ACID. [Concomitant]
     Active Substance: ASCORBIC ACID
     Route: 048
     Dates: start: 20200103, end: 20200111
  5. TRASTUZUMAB. [Suspect]
     Active Substance: TRASTUZUMAB
     Indication: BREAST CANCER
     Dosage: DATE OF LAST DOSE TRASTUZUMAB (600 MG) PRIOR TO ADVERSE EVENT : 13/DEC/2019
     Route: 058
     Dates: start: 20190405, end: 20200103
  6. PERTUZUMAB. [Suspect]
     Active Substance: PERTUZUMAB
     Indication: BREAST CANCER
     Dosage: DATE OF LAST DOSE PERTUZUMAB (420 MG) PRIOR TO ADVERSE EVENT : 13/DEC/2019
     Route: 065
     Dates: start: 20190405, end: 20200103
  7. CODEINE [Concomitant]
     Active Substance: CODEINE
     Route: 048
     Dates: start: 20200103, end: 20200111
  8. LEVOFLOXACIN. [Concomitant]
     Active Substance: LEVOFLOXACIN
     Indication: INFECTION
     Route: 048
     Dates: start: 20191227, end: 20200103
  9. TAMOXIFEN [Suspect]
     Active Substance: TAMOXIFEN
     Indication: BREAST CANCER
     Dosage: DATE OF LAST DOSE TAMOXIFEN (1 MG) PRIOR TO ADVERSE EVENT : 13/DEC/2019
     Route: 048
     Dates: start: 20190920, end: 20200103
  10. PREDNISONE. [Concomitant]
     Active Substance: PREDNISONE
     Route: 048
     Dates: start: 20200106, end: 20200109
  11. AZITHROMYCIN ANHYDROUS. [Concomitant]
     Active Substance: AZITHROMYCIN ANHYDROUS
     Indication: INFECTION
     Route: 048
     Dates: start: 20191227, end: 20191227
  12. PREDNISONE. [Concomitant]
     Active Substance: PREDNISONE
     Indication: INFECTION
     Route: 048
     Dates: start: 20191227, end: 20200103

REACTIONS (1)
  - Pneumonia [Recovered/Resolved]

NARRATIVE: CASE EVENT DATE: 20191220
